FAERS Safety Report 24418838 (Version 1)
Quarter: 2024Q4

REPORT INFORMATION
  Report Type: Report from Study
  Country: CA (occurrence: CA)
  Receive Date: 20241009
  Receipt Date: 20241009
  Transmission Date: 20250115
  Serious: Yes (Hospitalization, Other)
  Sender: ABBVIE
  Company Number: CA-ABBVIE-5956173

PATIENT
  Sex: Male

DRUGS (1)
  1. LUPRON DEPOT [Suspect]
     Active Substance: LEUPROLIDE ACETATE
     Indication: Prostate cancer
     Route: 030
     Dates: start: 20200326

REACTIONS (4)
  - Nephrostomy [Unknown]
  - Pain [Unknown]
  - Hypertension [Unknown]
  - Urinary retention [Unknown]

NARRATIVE: CASE EVENT DATE: 20241003
